FAERS Safety Report 18022225 (Version 1)
Quarter: 2020Q3

REPORT INFORMATION
  Report Type: Spontaneous
  Country: US (occurrence: US)
  Receive Date: 20200714
  Receipt Date: 20200714
  Transmission Date: 20201103
  Serious: Yes (Other)
  Sender: FDA-Public Use
  Company Number: US-PURDUE-USA-2020-0157085

PATIENT
  Age: 41 Year
  Sex: Male

DRUGS (1)
  1. OXYCONTIN [Suspect]
     Active Substance: OXYCODONE HYDROCHLORIDE
     Indication: SPINAL OPERATION
     Dosage: UNK
     Route: 048
     Dates: start: 200710

REACTIONS (17)
  - Haematochezia [Unknown]
  - Haemorrhoids [Unknown]
  - Low density lipoprotein increased [Unknown]
  - Vitamin B12 increased [Unknown]
  - Ulnar neuritis [Unknown]
  - Thyroid mass [Unknown]
  - Cervical radiculopathy [Unknown]
  - Hypoaesthesia [Unknown]
  - Alanine aminotransferase increased [Unknown]
  - Sleep apnoea syndrome [Unknown]
  - Thyroid function test abnormal [Unknown]
  - Hypothyroidism [Unknown]
  - Pain [Unknown]
  - Paraesthesia [Unknown]
  - Snoring [Unknown]
  - Chest pain [Unknown]
  - Carpal tunnel syndrome [Unknown]

NARRATIVE: CASE EVENT DATE: 20170125
